FAERS Safety Report 6321559-3 (Version None)
Quarter: 2009Q3

REPORT INFORMATION
  Report Type: 
  Country: None (occurrence: None)
  Receive Date: 20090821
  Receipt Date: 20090821
  Transmission Date: 20100115
  Serious: Yes (Other)
  Sender: FDA-Public Use
  Company Number: None

PATIENT
  Sex: Male
  Weight: 79.3795 kg

DRUGS (2)
  1. MIRAPEX [Suspect]
     Indication: PARKINSON'S DISEASE
     Dosage: 0.25, 0.5 + 1 MG 4-5 X DAILY MOUTH
     Route: 048
     Dates: start: 20041001, end: 20090101
  2. MIRAPEX [Suspect]
     Indication: RESTLESS LEGS SYNDROME
     Dosage: 0.25, 0.5 + 1 MG 4-5 X DAILY MOUTH
     Route: 048
     Dates: start: 20041001, end: 20090101

REACTIONS (6)
  - ANXIETY [None]
  - LIBIDO INCREASED [None]
  - OBSESSIVE-COMPULSIVE DISORDER [None]
  - PANIC REACTION [None]
  - PATHOLOGICAL GAMBLING [None]
  - THINKING ABNORMAL [None]
